FAERS Safety Report 9297481 (Version 2)
Quarter: 2013Q4

REPORT INFORMATION
  Report Type: Spontaneous
  Country: US (occurrence: US)
  Receive Date: 20130520
  Receipt Date: 20131025
  Transmission Date: 20140711
  Serious: Yes (Hospitalization, Other)
  Sender: FDA-Public Use
  Company Number: US-BAYER-2013-060359

PATIENT
  Age: 40 Year
  Sex: Female
  Weight: 54.42 kg

DRUGS (3)
  1. MIRENA [Suspect]
     Indication: CONTRACEPTION
     Dosage: 20 MCG/24HR, CONT
     Route: 015
     Dates: start: 20080624, end: 20081121
  2. SYNTHROID [Concomitant]
     Indication: HYPOTHYROIDISM
     Dosage: UNK
     Dates: start: 2007, end: 2011
  3. LORAZEPAM [Concomitant]
     Indication: ANXIETY

REACTIONS (7)
  - Uterine perforation [None]
  - Injury [None]
  - Pain [None]
  - Emotional distress [None]
  - Genital haemorrhage [None]
  - Abdominal pain lower [None]
  - Dyspareunia [None]
